FAERS Safety Report 4937522-0 (Version None)
Quarter: 2006Q1

REPORT INFORMATION
  Report Type: 
  Country: None (occurrence: None)
  Receive Date: 20060308
  Receipt Date: 20060308
  Transmission Date: 20060701
  Serious: Yes (Other)
  Sender: FDA-Public Use
  Company Number: None

PATIENT
  Sex: Male
  Weight: 75 kg

DRUGS (1)
  1. ENOXAPARIN SODIUM [Suspect]
     Indication: ANGIOPATHY
     Dosage: 80 MG SC EVERY 12 HOURS
     Dates: start: 20051101

REACTIONS (1)
  - ALOPECIA [None]
